FAERS Safety Report 21559137 (Version 1)
Quarter: 2022Q4

REPORT INFORMATION
  Report Type: Spontaneous
  Country: US (occurrence: None)
  Receive Date: 20221104
  Receipt Date: 20221104
  Transmission Date: 20230113
  Serious: Yes (Hospitalization)
  Sender: FDA-Public Use
  Company Number: None

PATIENT
  Sex: Female

DRUGS (16)
  1. AMBRISENTAN [Suspect]
     Active Substance: AMBRISENTAN
     Indication: Pulmonary arterial hypertension
     Dosage: ?TAKE 1 TABLET (10 MG TOTAL) BY MOUTH DAILY
     Route: 048
     Dates: start: 20200131
  2. AMBRISENTAN [Suspect]
     Active Substance: AMBRISENTAN
     Dosage: FREQUENCY : DAILY;?
     Route: 048
  3. AUBAGIO [Concomitant]
     Active Substance: TERIFLUNOMIDE
  4. BUMETANIDE [Concomitant]
     Active Substance: BUMETANIDE
  5. BUPROPION [Concomitant]
     Active Substance: BUPROPION
  6. CITALOPRAM [Concomitant]
  7. ATROPINE SULFATE\DIPHENOXYLATE [Concomitant]
     Active Substance: ATROPINE SULFATE\DIPHENOXYLATE
  8. FAMOTIDINE [Concomitant]
     Active Substance: FAMOTIDINE
  9. GABAPENTIN [Concomitant]
     Active Substance: GABAPENTIN
  10. METOLAZONE [Concomitant]
     Active Substance: METOLAZONE
  11. POT CHRLODIDE [Concomitant]
  12. ROPINIROLE [Concomitant]
     Active Substance: ROPINIROLE
  13. SPIRONOLACTONE [Concomitant]
     Active Substance: SPIRONOLACTONE
  14. TADALAFIL [Concomitant]
     Active Substance: TADALAFIL
  15. TOPAMAX [Concomitant]
     Active Substance: TOPIRAMATE
  16. TREPROSTINIL [Concomitant]
     Active Substance: TREPROSTINIL

REACTIONS (3)
  - Cardiac failure congestive [None]
  - Biopsy site unspecified abnormal [None]
  - Infection [None]
